FAERS Safety Report 4868669-5 (Version None)
Quarter: 2005Q4

REPORT INFORMATION
  Report Type: 
  Country: None (occurrence: None)
  Receive Date: 20051223
  Receipt Date: 20051214
  Transmission Date: 20060501
  Serious: Yes (Other)
  Sender: FDA-Public Use
  Company Number: 2005129686

PATIENT
  Sex: Male
  Weight: 85.7298 kg

DRUGS (17)
  1. NEURONTIN [Suspect]
     Indication: NEUROPATHY
     Dosage: 1600 MG (800 MG, 2 IN 1 D)
     Dates: start: 20021001
  2. LABETALOL HCL [Concomitant]
  3. LOTREL [Concomitant]
  4. GLIPIZIDE [Concomitant]
  5. PLAVIX [Concomitant]
  6. VITAMIN B12 [Concomitant]
  7. CENTRUM SILVER (ASCORBIC ACID, CALCIUM, MINERALS NOS, RETINOL, TOCOPHE [Concomitant]
  8. NORTRIPTYLINE (NORTRIPTYLINE) [Concomitant]
  9. FENOFIBRATE [Concomitant]
  10. ALLEGRA [Concomitant]
  11. FLONASE [Concomitant]
  12. XANAX [Concomitant]
  13. AMBIEN [Concomitant]
  14. VICODIN [Concomitant]
  15. ZYRTEC [Concomitant]
  16. NITROSTAT (NITROGLYCERIN) [Concomitant]
  17. XANAX [Concomitant]

REACTIONS (13)
  - ACUTE MYOCARDIAL INFARCTION [None]
  - ANAEMIA [None]
  - ARTERIOSCLEROSIS CORONARY ARTERY [None]
  - BLOOD CHOLESTEROL INCREASED [None]
  - GENERALISED ANXIETY DISORDER [None]
  - JOINT SPRAIN [None]
  - MUSCLE STRAIN [None]
  - OSTEOARTHRITIS [None]
  - PRURITUS [None]
  - RADICULOPATHY [None]
  - TREATMENT NONCOMPLIANCE [None]
  - VERTIGO [None]
  - VISUAL DISTURBANCE [None]
